FAERS Safety Report 8043069-8 (Version None)
Quarter: 2012Q1

REPORT INFORMATION
  Report Type: 
  Country: None (occurrence: None)
  Receive Date: 20120112
  Receipt Date: 20120104
  Transmission Date: 20120608
  Serious: Yes (Hospitalization)
  Sender: FDA-Public Use
  Company Number: FR-BAYER-2012-001592

PATIENT
  Age: 31 Year
  Sex: Female

DRUGS (4)
  1. PASER [Suspect]
     Indication: TUBERCULOSIS
     Dosage: 4 G, BID
     Route: 048
     Dates: start: 20111010
  2. CYCLOSERINE [Suspect]
     Indication: TUBERCULOSIS
     Dosage: 250 MG, QD
     Route: 048
     Dates: start: 20111010, end: 20111115
  3. MOXIFLOXACIN HCL [Suspect]
     Indication: TUBERCULOSIS
     Dosage: 400 MG, QD
     Route: 048
     Dates: start: 20111010
  4. TRECATOR [Suspect]
     Indication: TUBERCULOSIS
     Dosage: 500 MG, QD
     Route: 048
     Dates: start: 20111010

REACTIONS (1)
  - DELIRIUM [None]
